FAERS Safety Report 4749599-6 (Version None)
Quarter: 2005Q3

REPORT INFORMATION
  Report Type: 
  Country: None (occurrence: None)
  Receive Date: 20050819
  Receipt Date: 20050819
  Transmission Date: 20060218
  Serious: Yes (Hospitalization)
  Sender: FDA-Public Use
  Company Number: None

PATIENT
  Age: 50 Year
  Sex: Male
  Weight: 65 kg

DRUGS (1)
  1. OXALIPLATIN   130MG/M2  = 224 MG [Suspect]
     Indication: HEPATIC NEOPLASM MALIGNANT
     Dosage: 224MG  Q 21 DAYS  HEPATIC ARTERIAL INFUSION
     Dates: start: 20050812

REACTIONS (4)
  - ABDOMINAL PAIN [None]
  - HEPATIC NEOPLASM MALIGNANT [None]
  - NEOPLASM RECURRENCE [None]
  - PROCEDURAL PAIN [None]
